FAERS Safety Report 9750955 (Version 1)
Quarter: 2013Q4

REPORT INFORMATION
  Report Type: Spontaneous
  Country: US (occurrence: US)
  Receive Date: 20131212
  Receipt Date: 20131212
  Transmission Date: 20140711
  Serious: No
  Sender: FDA-Public Use
  Company Number: US-TEVA-398755USA

PATIENT
  Age: 32 Year
  Sex: Female
  Weight: 55.39 kg

DRUGS (1)
  1. PARAGARD 380A [Suspect]
     Indication: CONTRACEPTION
     Route: 015
     Dates: start: 201104, end: 201204

REACTIONS (4)
  - Iron deficiency [Unknown]
  - Metrorrhagia [Recovered/Resolved]
  - Menorrhagia [Not Recovered/Not Resolved]
  - Constipation [Recovered/Resolved]
